FAERS Safety Report 23620125 (Version 2)
Quarter: 2024Q2

REPORT INFORMATION
  Report Type: Spontaneous
  Country: US (occurrence: None)
  Receive Date: 20240312
  Receipt Date: 20240409
  Transmission Date: 20240715
  Serious: No
  Sender: FDA-Public Use
  Company Number: 2024A054268

PATIENT
  Sex: Female
  Weight: 60.8 kg

DRUGS (1)
  1. SAPHNELO [Suspect]
     Active Substance: ANIFROLUMAB\ANIFROLUMAB-FNIA
     Indication: Systemic lupus erythematosus
     Route: 041
     Dates: start: 202304

REACTIONS (3)
  - Drug ineffective [Unknown]
  - Headache [Unknown]
  - Pain [Unknown]
